FAERS Safety Report 11095290 (Version 1)
Quarter: 2015Q2

REPORT INFORMATION
  Report Type: Spontaneous
  Country: US (occurrence: US)
  Receive Date: 20150506
  Receipt Date: 20150506
  Transmission Date: 20150821
  Serious: Yes (Life-Threatening)
  Sender: FDA-Public Use
  Company Number: US-SA-2014SA163892

PATIENT
  Age: 44 Year
  Sex: Female

DRUGS (2)
  1. NOVOLOG [Concomitant]
     Active Substance: INSULIN ASPART
     Indication: TYPE 1 DIABETES MELLITUS
  2. APIDRA [Suspect]
     Active Substance: INSULIN GLULISINE
     Indication: TYPE 1 DIABETES MELLITUS
     Dosage: 24-60 UNITS QD
     Route: 065

REACTIONS (7)
  - Liquid product physical issue [Unknown]
  - Dysstasia [Unknown]
  - Visual impairment [Unknown]
  - Dysphagia [Unknown]
  - Hyperglycaemia [Unknown]
  - Vomiting [Unknown]
  - Dysuria [Unknown]

NARRATIVE: CASE EVENT DATE: 20141117
